FAERS Safety Report 8759532 (Version 1)
Quarter: 2012Q4

REPORT INFORMATION
  Report Type: 
  Country: US (occurrence: US)
  Receive Date: 20120829
  Receipt Date: 20120829
  Transmission Date: 20130627
  Serious: Yes (Hospitalization)
  Sender: FDA-Public Use
  Company Number: US-AMGEN-USASP2012052960

PATIENT
  Age: 71 Year
  Sex: Male

DRUGS (2)
  1. EPOGEN [Suspect]
     Indication: DIALYSIS
  2. EPOGEN [Suspect]

REACTIONS (7)
  - Pain in extremity [Unknown]
  - Hypoaesthesia [Unknown]
  - Balance disorder [Unknown]
  - Device failure [Unknown]
  - Dyspnoea [Not Recovered/Not Resolved]
  - Oedema peripheral [Unknown]
  - Thrombosis [Unknown]
